FAERS Safety Report 25489448 (Version 1)
Quarter: 2025Q2

REPORT INFORMATION
  Report Type: Spontaneous
  Country: CA (occurrence: CA)
  Receive Date: 20250627
  Receipt Date: 20250627
  Transmission Date: 20250716
  Serious: Yes (Other)
  Sender: REGENERON
  Company Number: CA-SA-2025SA178891

PATIENT
  Age: 52 Year
  Sex: Male

DRUGS (1)
  1. PRALUENT [Suspect]
     Active Substance: ALIROCUMAB
     Indication: Hypercholesterolaemia
     Dosage: 150 MG, QOW,  SOLUTION FOR INJECTION
     Route: 058

REACTIONS (2)
  - Brain neoplasm [Unknown]
  - Therapy change [Unknown]
